FAERS Safety Report 17418709 (Version 1)
Quarter: 2020Q1

REPORT INFORMATION
  Report Type: Spontaneous
  Country: ES (occurrence: ES)
  Receive Date: 20200212
  Receipt Date: 20200212
  Transmission Date: 20200409
  Serious: Yes (Hospitalization, Other)
  Sender: FDA-Public Use
  Company Number: ES-TEVA-2020-ES-1184409

PATIENT
  Age: 81 Year
  Sex: Female

DRUGS (6)
  1. LANTUS SOLOSTAR 100 UNIDADES/ML SOLUCION INYECTABLE EN PLUMA PRECARGAD [Concomitant]
     Indication: TYPE 2 DIABETES MELLITUS
     Route: 058
     Dates: start: 20120328
  2. METFORMINA 850 MG 50 COMPRIMIDOS [Suspect]
     Active Substance: METFORMIN HYDROCHLORIDE
     Indication: TYPE 2 DIABETES MELLITUS
     Dosage: 850 MG
     Route: 048
     Dates: start: 20180326, end: 20200118
  3. ATORVASTATINA 20 MG 28 COMPRIMIDOS [Concomitant]
     Indication: TYPE IIA HYPERLIPIDAEMIA
     Dosage: 20 MG
     Route: 048
     Dates: start: 20150817
  4. ESOMEPRAZOL 20 MG 56 CAPSULAS [Concomitant]
     Indication: ORGANIC BRAIN SYNDROME
     Dosage: 20 MG
     Route: 048
     Dates: start: 20190523
  5. DONEPEZILO 5 MG 28 COMPRIMIDOS [Concomitant]
     Indication: ORGANIC BRAIN SYNDROME
     Dosage: 5 MG
     Route: 048
     Dates: start: 20190522
  6. IRBESARTAN 150 MG 28 COMPRIMIDOS [Concomitant]
     Indication: HYPERTENSION
     Dosage: 150 MG
     Route: 048
     Dates: start: 20170722

REACTIONS (2)
  - Urinary tract infection [Recovered/Resolved]
  - Lactic acidosis [Recovered/Resolved]

NARRATIVE: CASE EVENT DATE: 20200118
